FAERS Safety Report 20155131 (Version 2)
Quarter: 2021Q4

REPORT INFORMATION
  Report Type: Spontaneous
  Country: US (occurrence: US)
  Receive Date: 20211207
  Receipt Date: 20211210
  Transmission Date: 20220303
  Serious: Yes (Other)
  Sender: FDA-Public Use
  Company Number: US-BIOCODEX2-2021001479

PATIENT

DRUGS (2)
  1. DIACOMIT [Suspect]
     Active Substance: STIRIPENTOL
     Indication: Severe myoclonic epilepsy of infancy
     Dosage: 2 CAPSULES BID PER DAY
     Route: 048
     Dates: start: 20211031, end: 20211114
  2. ONFI [Concomitant]
     Active Substance: CLOBAZAM
     Indication: Product used for unknown indication
     Route: 065

REACTIONS (8)
  - Dysuria [Recovered/Resolved]
  - Fluid retention [Recovered/Resolved]
  - Condition aggravated [Recovered/Resolved]
  - Fear [Recovered/Resolved]
  - Screaming [Recovered/Resolved]
  - Middle insomnia [Recovered/Resolved]
  - Behaviour disorder [Recovered/Resolved]
  - Product use in unapproved indication [Unknown]
